FAERS Safety Report 16455184 (Version 2)
Quarter: 2019Q2

REPORT INFORMATION
  Report Type: Spontaneous
  Country: US (occurrence: US)
  Receive Date: 20190620
  Receipt Date: 20190620
  Transmission Date: 20190711
  Serious: No
  Sender: FDA-Public Use
  Company Number: US-GLENMARK PHARMACEUTICALS-2019GMK040493

PATIENT

DRUGS (1)
  1. ESTRADIOL VAGINAL INSERTS USP [Suspect]
     Active Substance: ESTRADIOL
     Indication: MIXED INCONTINENCE
     Dosage: 1 DF, TWICE A WEEK
     Route: 067

REACTIONS (4)
  - Product physical issue [Unknown]
  - Device issue [Unknown]
  - Accidental underdose [Unknown]
  - Product quality issue [Unknown]
